FAERS Safety Report 4859638-X (Version None)
Quarter: 2005Q4

REPORT INFORMATION
  Report Type: 
  Country: None (occurrence: None)
  Receive Date: 20051219
  Receipt Date: 20050701
  Transmission Date: 20060501
  Serious: No
  Sender: FDA-Public Use
  Company Number: US-GLAXOSMITHKLINE-A0564803A

PATIENT
  Age: 35 Year
  Sex: Female

DRUGS (2)
  1. NICODERM CQ [Suspect]
     Dates: start: 20050630
  2. NICODERM CQ [Suspect]

REACTIONS (6)
  - ABNORMAL DREAMS [None]
  - APPLICATION SITE IRRITATION [None]
  - MYALGIA [None]
  - NAUSEA [None]
  - PAIN IN EXTREMITY [None]
  - SHOULDER PAIN [None]
